FAERS Safety Report 7526117-0 (Version None)
Quarter: 2011Q2

REPORT INFORMATION
  Report Type: 
  Country: None (occurrence: None)
  Receive Date: 20110527
  Receipt Date: 20101104
  Transmission Date: 20111010
  Serious: Yes (Hospitalization)
  Sender: FDA-Public Use
  Company Number: 7025895

PATIENT
  Sex: Male
  Weight: 77 kg

DRUGS (2)
  1. CYANOKIT [Suspect]
     Indication: ALCOHOL POISONING
     Dates: start: 20101101, end: 20101101
  2. FOMEPIZOLE [Suspect]
     Indication: ALCOHOL POISONING
     Dates: start: 20101101

REACTIONS (2)
  - DEVICE LEAKAGE [None]
  - DIALYSIS [None]
